FAERS Safety Report 19100910 (Version 2)
Quarter: 2021Q2

REPORT INFORMATION
  Report Type: Spontaneous
  Country: BR (occurrence: BR)
  Receive Date: 20210407
  Receipt Date: 20210413
  Transmission Date: 20210717
  Serious: Yes (Death, Other)
  Sender: FDA-Public Use
  Company Number: BR-ROCHE-2804184

PATIENT
  Age: 72 Year
  Sex: Male
  Weight: 95 kg

DRUGS (6)
  1. ACTEMRA [Suspect]
     Active Substance: TOCILIZUMAB
     Indication: COVID-19
     Route: 042
     Dates: start: 20210314, end: 20210314
  2. FENTANYL. [Concomitant]
     Active Substance: FENTANYL
  3. DORMONID [Concomitant]
     Active Substance: MIDAZOLAM MALEATE
  4. NORADRENALINE [Concomitant]
     Active Substance: NOREPINEPHRINE
  5. ENCRISE [Concomitant]
  6. ROCURONIUM [Concomitant]
     Active Substance: ROCURONIUM BROMIDE

REACTIONS (8)
  - Off label use [Fatal]
  - Renal impairment [Not Recovered/Not Resolved]
  - Cyanosis [Not Recovered/Not Resolved]
  - Cardio-respiratory arrest [Fatal]
  - Multi-organ disorder [Fatal]
  - Bradycardia [Unknown]
  - Hypotension [Unknown]
  - Death [Fatal]

NARRATIVE: CASE EVENT DATE: 20210314
